FAERS Safety Report 5207424-3 (Version None)
Quarter: 2006Q4

REPORT INFORMATION
  Report Type: 
  Country: None (occurrence: None)
  Receive Date: 20061027
  Receipt Date: 20060626
  Transmission Date: 20070319
  Serious: Yes (Hospitalization)
  Sender: FDA-Public Use
  Company Number: HQWYE408927JUN06

PATIENT
  Age: 69 Year
  Sex: Female

DRUGS (2)
  1. PREMARIN [Suspect]
     Indication: MENOPAUSAL SYMPTOMS
     Dosage: 0.625 MG 1X PER 1 DAY, ORAL; 1.25 MG 1X PER 1 DAY, ORAL
     Route: 048
     Dates: start: 19820101, end: 20020101
  2. PREMARIN [Suspect]
     Indication: MENOPAUSAL SYMPTOMS
     Dosage: 0.625 MG 1X PER 1 DAY, ORAL; 1.25 MG 1X PER 1 DAY, ORAL
     Route: 048
     Dates: start: 20020101, end: 20060617

REACTIONS (1)
  - PULMONARY EMBOLISM [None]
